FAERS Safety Report 5358686-3 (Version None)
Quarter: 2007Q2

REPORT INFORMATION
  Report Type: 
  Country: None (occurrence: None)
  Receive Date: 20070615
  Receipt Date: 20070613
  Transmission Date: 20071010
  Serious: Yes (Other)
  Sender: FDA-Public Use
  Company Number: US-BRISTOL-MYERS SQUIBB COMPANY-13671672

PATIENT
  Age: 44 Year
  Sex: Female

DRUGS (7)
  1. TAXOL [Suspect]
     Indication: BREAST CANCER
     Route: 042
     Dates: start: 20070104, end: 20070104
  2. CYTOXAN [Suspect]
     Indication: BREAST CANCER
     Route: 042
     Dates: start: 20061213, end: 20061213
  3. ADRIAMYCIN PFS [Suspect]
     Indication: BREAST CANCER
     Route: 042
     Dates: start: 20061213, end: 20061213
  4. BEVACIZUMAB [Suspect]
     Indication: BREAST CANCER
     Route: 042
     Dates: start: 20070104, end: 20070104
  5. NEULASTA [Suspect]
     Indication: BREAST CANCER
     Route: 058
     Dates: start: 20070105, end: 20070105
  6. HYDROCODONE BITARTRATE [Concomitant]
     Indication: PAIN
     Route: 048
     Dates: start: 20061227, end: 20070113
  7. MEDROL [Concomitant]
     Indication: PROPHYLAXIS
     Route: 048
     Dates: start: 20070105, end: 20070110

REACTIONS (1)
  - MYALGIA [None]
